FAERS Safety Report 9304392 (Version 2)
Quarter: 2013Q2

REPORT INFORMATION
  Report Type: Spontaneous
  Country: BR (occurrence: BR)
  Receive Date: 20130522
  Receipt Date: 20130604
  Transmission Date: 20140414
  Serious: Yes (Hospitalization)
  Sender: FDA-Public Use
  Company Number: BR-B.I. PHARMACEUTICALS,INC./RIDGEFIELD-2013-BR-00577BR

PATIENT
  Age: 54 Year
  Sex: Female
  Weight: 51 kg

DRUGS (7)
  1. SPIRIVA RESPIMAT [Suspect]
     Indication: CHRONIC OBSTRUCTIVE PULMONARY DISEASE
     Dosage: 5 MCG
     Route: 055
     Dates: start: 201107
  2. SPIRIVA RESPIMAT [Suspect]
     Indication: DYSPNOEA
  3. SPIRIVA RESPIMAT [Suspect]
     Indication: COUGH
  4. ATROVENT [Suspect]
     Dosage: 30 ANZ
  5. SERETIDE [Suspect]
     Indication: DYSPNOEA
     Dates: start: 201107
  6. SERETIDE [Suspect]
     Indication: COUGH
  7. AEROLIN [Concomitant]

REACTIONS (6)
  - Pneumonia [Recovered/Resolved]
  - Increased upper airway secretion [Not Recovered/Not Resolved]
  - Rhinorrhoea [Not Recovered/Not Resolved]
  - Dyspnoea [Recovered/Resolved]
  - Urinary tract infection [Recovered/Resolved]
  - Chromaturia [Recovered/Resolved]
